FAERS Safety Report 16406505 (Version 2)
Quarter: 2019Q3

REPORT INFORMATION
  Report Type: Spontaneous
  Country: FR (occurrence: FR)
  Receive Date: 20190607
  Receipt Date: 20190722
  Transmission Date: 20191004
  Serious: Yes (Other)
  Sender: FDA-Public Use
  Company Number: PHHY2019FR130919

PATIENT
  Sex: Male
  Weight: 87 kg

DRUGS (10)
  1. ABIRATERONE ACETATE. [Suspect]
     Active Substance: ABIRATERONE ACETATE
     Indication: PROSTATE CANCER METASTATIC
     Dosage: 1000 MG, QD
     Route: 048
     Dates: start: 20180502
  2. BICALUTAMIDE. [Suspect]
     Active Substance: BICALUTAMIDE
     Indication: PROSTATE CANCER METASTATIC
     Dosage: 50 MG, CYCLIC
     Route: 048
     Dates: start: 20181025
  3. DOCETAXEL. [Suspect]
     Active Substance: DOCETAXEL
     Dosage: 150 MG, QD
     Route: 065
     Dates: start: 20190307
  4. TRIPTORELIN ACETATE [Suspect]
     Active Substance: TRIPTORELIN ACETATE
     Indication: PROSTATE CANCER METASTATIC
     Dosage: 1125 MG, QD
     Route: 042
     Dates: start: 20181025
  5. BICALUTAMIDE. [Suspect]
     Active Substance: BICALUTAMIDE
     Dosage: 50 MG, CYCLIC
     Route: 048
     Dates: start: 20181125
  6. PREDNISONE. [Suspect]
     Active Substance: PREDNISONE
     Indication: PROSTATE CANCER METASTATIC
     Dosage: 5 MG, QD
     Route: 048
     Dates: start: 20181122
  7. TRIPTORELIN ACETATE [Suspect]
     Active Substance: TRIPTORELIN ACETATE
     Dosage: 1125 MG, UNK
     Route: 042
     Dates: start: 201904
  8. ABIRATERONE ACETATE. [Suspect]
     Active Substance: ABIRATERONE ACETATE
     Dosage: 1000 MG, QD
     Route: 048
     Dates: start: 20181122
  9. DOCETAXEL. [Suspect]
     Active Substance: DOCETAXEL
     Indication: PROSTATE CANCER METASTATIC
     Dosage: 150 MG, QD
     Route: 065
     Dates: start: 20181122
  10. PREDNISONE. [Suspect]
     Active Substance: PREDNISONE
     Dosage: 5 MG, UNK
     Route: 048
     Dates: start: 20190502

REACTIONS (1)
  - Tendon rupture [Recovered/Resolved with Sequelae]

NARRATIVE: CASE EVENT DATE: 20190502
